FAERS Safety Report 15624523 (Version 1)
Quarter: 2018Q4

REPORT INFORMATION
  Report Type: Spontaneous
  Country: US (occurrence: US)
  Receive Date: 20181116
  Receipt Date: 20181116
  Transmission Date: 20190205
  Serious: No
  Sender: FDA-Public Use
  Company Number: US-BIOGEN-2018BI00657001

PATIENT
  Sex: Female

DRUGS (1)
  1. TECFIDERA [Suspect]
     Active Substance: DIMETHYL FUMARATE
     Indication: MULTIPLE SCLEROSIS
     Dosage: DATE OVERDOSE OCCURRED    - 06-NOV-2018?DID OVERDOSE RESULT IN A SAE- NO
     Route: 048
     Dates: start: 20141031

REACTIONS (2)
  - Extra dose administered [Unknown]
  - Flushing [Unknown]
